APPROVED DRUG PRODUCT: ERYTHROMYCIN
Active Ingredient: ERYTHROMYCIN
Strength: 2%
Dosage Form/Route: SOLUTION;TOPICAL
Application: A062616 | Product #001
Applicant: PHARMAFAIR INC
Approved: Jul 25, 1985 | RLD: No | RS: No | Type: DISCN